FAERS Safety Report 5444127-4 (Version None)
Quarter: 2007Q3

REPORT INFORMATION
  Report Type: 
  Country: None (occurrence: None)
  Receive Date: 20070831
  Receipt Date: 20070822
  Transmission Date: 20080115
  Serious: Yes (Other)
  Sender: FDA-Public Use
  Company Number: DSJ-2007-06104

PATIENT
  Age: 60 Year
  Sex: Male

DRUGS (2)
  1. OLMESARTAN MEDOXOMIL [Suspect]
     Dosage: 10 MG, PER ORAL
     Route: 048
  2. LASIX [Concomitant]

REACTIONS (1)
  - RENAL IMPAIRMENT [None]
